FAERS Safety Report 4426712-1 (Version None)
Quarter: 2004Q3

REPORT INFORMATION
  Report Type: 
  Country: None (occurrence: None)
  Receive Date: 20040811
  Receipt Date: 20040727
  Transmission Date: 20050211
  Serious: Yes (Other)
  Sender: FDA-Public Use
  Company Number: USA040773837

PATIENT
  Age: 53 Year
  Sex: Male
  Weight: 77 kg

DRUGS (3)
  1. PROZAC WEEKLY [Suspect]
     Indication: DEPRESSION
     Dosage: 90 MG/ 1 DAY WEEKLY
     Route: 048
     Dates: start: 20031201
  2. LOTREL [Concomitant]
  3. MAXZIDE [Concomitant]

REACTIONS (4)
  - ACCIDENTAL OVERDOSE [None]
  - DIZZINESS [None]
  - FEELING ABNORMAL [None]
  - MEDICATION ERROR [None]
